FAERS Safety Report 18716586 (Version 2)
Quarter: 2021Q1

REPORT INFORMATION
  Report Type: Spontaneous
  Country: US (occurrence: US)
  Receive Date: 20210108
  Receipt Date: 20210210
  Transmission Date: 20210419
  Serious: Yes (Other)
  Sender: FDA-Public Use
  Company Number: US-BAUSCH-BL-2020-039422

PATIENT
  Age: 23 Year
  Sex: Male

DRUGS (19)
  1. DORYX [Suspect]
     Active Substance: DOXYCYCLINE HYCLATE
     Indication: ACNE
     Route: 065
  2. ACZONE [Concomitant]
     Active Substance: DAPSONE
     Route: 065
  3. TAZORAC [Concomitant]
     Active Substance: TAZAROTENE
     Indication: PRODUCT USED FOR UNKNOWN INDICATION
  4. DOXYCYCLINE. [Concomitant]
     Active Substance: DOXYCYCLINE
     Indication: ACNE
  5. ACZONE [Concomitant]
     Active Substance: DAPSONE
     Indication: ACNE
  6. ZIANA [Concomitant]
     Active Substance: CLINDAMYCIN PHOSPHATE\TRETINOIN
     Indication: PRODUCT USED FOR UNKNOWN INDICATION
     Dosage: AS NEEDED
  7. TRIAZ [Concomitant]
     Active Substance: BENZOYL PEROXIDE
     Indication: PRODUCT USED FOR UNKNOWN INDICATION
  8. SOLODYN [Suspect]
     Active Substance: MINOCYCLINE HYDROCHLORIDE
     Route: 065
  9. DORYX [Suspect]
     Active Substance: DOXYCYCLINE HYCLATE
     Route: 065
  10. EPIDUO FORTE [Concomitant]
     Active Substance: ADAPALENE\BENZOYL PEROXIDE
     Indication: PRODUCT USED FOR UNKNOWN INDICATION
     Dosage: 0.3% ? 2.5%, TO BE APPLIED NIGHTLY
     Route: 061
  11. PLEXION [Concomitant]
     Active Substance: SULFACETAMIDE SODIUM\SULFUR
     Indication: PRODUCT USED FOR UNKNOWN INDICATION
  12. SOLODYN [Suspect]
     Active Substance: MINOCYCLINE HYDROCHLORIDE
     Indication: ACNE
     Route: 065
     Dates: start: 2010
  13. BENZOYL PEROXIDE. [Concomitant]
     Active Substance: BENZOYL PEROXIDE
     Indication: ACNE
  14. SOLODYN [Suspect]
     Active Substance: MINOCYCLINE HYDROCHLORIDE
     Route: 065
     Dates: start: 201506, end: 201703
  15. SOLODYN [Suspect]
     Active Substance: MINOCYCLINE HYDROCHLORIDE
     Route: 065
     Dates: start: 201311
  16. SOLODYN [Suspect]
     Active Substance: MINOCYCLINE HYDROCHLORIDE
     Route: 065
  17. ACZONE [Concomitant]
     Active Substance: DAPSONE
     Route: 061
     Dates: start: 2014
  18. DUAC GEL [Concomitant]
     Active Substance: BENZOYL PEROXIDE\CLINDAMYCIN PHOSPHATE
     Indication: PRODUCT USED FOR UNKNOWN INDICATION
  19. PANOXYL [Concomitant]
     Active Substance: BENZOYL PEROXIDE
     Indication: ACNE

REACTIONS (2)
  - Drug-induced liver injury [Recovering/Resolving]
  - Insurance issue [Unknown]
